FAERS Safety Report 20042005 (Version 5)
Quarter: 2022Q3

REPORT INFORMATION
  Report Type: Report from Study
  Country: US (occurrence: US)
  Receive Date: 20211108
  Receipt Date: 20220714
  Transmission Date: 20221027
  Serious: Yes (Hospitalization)
  Sender: FDA-Public Use
  Company Number: US-SA-SAC20210405000431

PATIENT
  Age: 58 Year
  Sex: Female

DRUGS (4)
  1. DUPIXENT [Suspect]
     Active Substance: DUPILUMAB
     Indication: Asthma
  2. DUPILUMAB [Suspect]
     Active Substance: DUPILUMAB
     Indication: Asthma
     Dosage: 600 MG, 1X
     Route: 058
     Dates: start: 20190718, end: 20190718
  3. DUPILUMAB [Suspect]
     Active Substance: DUPILUMAB
     Dosage: 300 MG, QOW
     Route: 058
  4. PLAQUENIL [Suspect]
     Active Substance: HYDROXYCHLOROQUINE SULFATE

REACTIONS (13)
  - Neuralgia [Recovered/Resolved]
  - Nervous system disorder [Recovered/Resolved]
  - Injection site bruising [Recovered/Resolved]
  - Device operational issue [Recovered/Resolved]
  - Cardiomegaly [Recovering/Resolving]
  - Skin discolouration [Recovering/Resolving]
  - Osteoporosis [Unknown]
  - Asthma [Unknown]
  - Condition aggravated [Unknown]
  - Weight increased [Unknown]
  - Injection site urticaria [Recovered/Resolved]
  - Skin atrophy [Unknown]
  - Product use issue [Unknown]

NARRATIVE: CASE EVENT DATE: 20190718
